FAERS Safety Report 4494272-5 (Version None)
Quarter: 2004Q4

REPORT INFORMATION
  Report Type: 
  Country: None (occurrence: None)
  Receive Date: 20041102
  Receipt Date: 20041019
  Transmission Date: 20050328
  Serious: Yes (Hospitalization)
  Sender: FDA-Public Use
  Company Number: B0341668A

PATIENT
  Age: 40 Year
  Sex: Male
  Weight: 55.8832 kg

DRUGS (8)
  1. SEREVENT ROTADISK (SALMETEROL XINAFOATE) [Suspect]
     Indication: ASTHMA
     Dosage: 50 MCG/TWICE PER DAY
     Dates: start: 20031224, end: 20040604
  2. FLOVENT [Suspect]
     Indication: ASTHMA
     Dosage: 200 MCG TWICE PER DAY/INHALED
     Route: 055
     Dates: start: 20000901
  3. TULOBUTEROL HYDROCHLORIDE PADS (TULOBUTEROL HYDROCHLORIDE) [Suspect]
     Indication: ASTHMA
     Dosage: 2 MG PER DAY/TRANSDERMAL
     Route: 062
     Dates: start: 20001030, end: 20040609
  4. THEOPHYLLINE [Suspect]
     Dosage: 200 MCG TWICE PER DAY/ORAL
     Route: 048
     Dates: start: 19991001
  5. BECLOMETHASONE DIPROPIONATE [Concomitant]
  6. PREDONINE [Concomitant]
  7. PROCATEROL HCL [Concomitant]
  8. SERATRODAST [Concomitant]

REACTIONS (22)
  - ALCOHOL USE [None]
  - ALKALOSIS [None]
  - ANGIOTENSIN I INCREASED [None]
  - ANGIOTENSIN II INCREASED [None]
  - BLOOD ALDOSTERONE ABNORMAL [None]
  - BLOOD ALKALINE PHOSPHATASE ABNORMAL [None]
  - BLOOD BICARBONATE INCREASED [None]
  - BLOOD CREATINE PHOSPHOKINASE INCREASED [None]
  - BLOOD GLUCOSE INCREASED [None]
  - BLOOD PHOSPHORUS DECREASED [None]
  - BLOOD URIC ACID INCREASED [None]
  - DEHYDRATION [None]
  - GAMMA-GLUTAMYLTRANSFERASE ABNORMAL [None]
  - HYPERTRIGLYCERIDAEMIA [None]
  - HYPOCALCAEMIA [None]
  - HYPOCHLORAEMIA [None]
  - HYPOKALAEMIA [None]
  - HYPONATRAEMIA [None]
  - MALAISE [None]
  - MUSCULOSKELETAL STIFFNESS [None]
  - RENIN INCREASED [None]
  - VOMITING [None]
